FAERS Safety Report 6582142-8 (Version None)
Quarter: 2010Q1

REPORT INFORMATION
  Report Type: 
  Country: None (occurrence: None)
  Receive Date: 20100212
  Receipt Date: 20100212
  Transmission Date: 20100710
  Serious: Yes (Life-Threatening, Disabling, Other)
  Sender: FDA-Public Use
  Company Number: None

PATIENT
  Age: 68 Year
  Sex: Female
  Weight: 83.9154 kg

DRUGS (1)
  1. SEROQUEL [Suspect]
     Indication: SLEEP DISORDER THERAPY
     Dosage: 100 MG 1 DAILY
     Dates: start: 20050101, end: 20100101

REACTIONS (1)
  - DIABETES MELLITUS [None]
